FAERS Safety Report 7954571-9 (Version None)
Quarter: 2011Q4

REPORT INFORMATION
  Report Type: 
  Country: None (occurrence: None)
  Receive Date: 20111202
  Receipt Date: 20111118
  Transmission Date: 20120403
  Serious: Yes (Other)
  Sender: FDA-Public Use
  Company Number: CA-JNJFOC-20111108984

PATIENT
  Sex: Female
  Weight: 57.7 kg

DRUGS (6)
  1. PANTOPRAZOLE SODIUM [Concomitant]
     Route: 065
  2. CALCIUM [Concomitant]
     Route: 065
  3. IMURAN [Concomitant]
     Route: 065
  4. ALL OTHER THERAPEUTICS [Concomitant]
     Route: 065
  5. DIDROCAL [Concomitant]
     Route: 065
  6. REMICADE [Suspect]
     Indication: CROHN'S DISEASE
     Route: 042
     Dates: start: 20071011

REACTIONS (1)
  - INTESTINAL ULCER [None]
